FAERS Safety Report 15499653 (Version 1)
Quarter: 2018Q4

REPORT INFORMATION
  Report Type: Spontaneous
  Country: US (occurrence: US)
  Receive Date: 20181015
  Receipt Date: 20181015
  Transmission Date: 20190205
  Serious: Yes (Other)
  Sender: FDA-Public Use
  Company Number: US-PFIZER INC-2018411745

PATIENT
  Age: 69 Year
  Sex: Female

DRUGS (1)
  1. LYRICA [Suspect]
     Active Substance: PREGABALIN
     Dosage: 100 MG, UNK

REACTIONS (9)
  - Fall [Unknown]
  - Upper limb fracture [Unknown]
  - Vascular headache [Unknown]
  - Seizure [Unknown]
  - Cerebrovascular accident [Unknown]
  - Craniocerebral injury [Unknown]
  - Arthropathy [Unknown]
  - Foot fracture [Not Recovered/Not Resolved]
  - Headache [Unknown]
